FAERS Safety Report 23136919 (Version 6)
Quarter: 2024Q2

REPORT INFORMATION
  Report Type: Spontaneous
  Country: JP (occurrence: JP)
  Receive Date: 20231102
  Receipt Date: 20240523
  Transmission Date: 20240716
  Serious: Yes (Death)
  Sender: FDA-Public Use
  Company Number: JP-ABBVIE-5477811

PATIENT
  Sex: Male
  Weight: 65 kg

DRUGS (8)
  1. RINVOQ [Suspect]
     Active Substance: UPADACITINIB
     Indication: Crohn^s disease
     Dosage: LAST ADMIN DATE 2023?FORM STRENGTH 45 MILLIGRAMS
     Route: 048
     Dates: start: 20230714
  2. RINVOQ [Suspect]
     Active Substance: UPADACITINIB
     Indication: Crohn^s disease
     Dosage: FORM STRENGTH 45 MILLIGRAMS
     Route: 048
     Dates: start: 20230801, end: 20230818
  3. DIETARY SUPPLEMENT\PROBIOTICS [Concomitant]
     Active Substance: DIETARY SUPPLEMENT\PROBIOTICS NOS
     Indication: Product used for unknown indication
  4. ZINC [Suspect]
     Active Substance: PYRITHIONE ZINC\ZINC\ZINC CHLORIDE
     Indication: Hypozincaemia
     Dosage: 25 MILLIGRAM
     Route: 048
     Dates: start: 2021
  5. AMINO ACIDS\CARBOHYDRATES\MINERALS\SOYBEAN OIL\VITAMINS [Concomitant]
     Active Substance: AMINO ACIDS\CARBOHYDRATES\MINERALS\SOYBEAN OIL\VITAMINS
     Indication: Crohn^s disease
     Dosage: 2 BOTTLES/TIME
     Route: 048
  6. DIMETHICONE [Suspect]
     Active Substance: DIMETHICONE
     Indication: Abdominal distension
     Dosage: TIME INTERVAL: 0.16666667 DAYS: 240 MILLIGRAM
     Route: 048
     Dates: start: 2020
  7. MAGNESIUM OXIDE [Suspect]
     Active Substance: MAGNESIUM OXIDE
     Indication: Crohn^s disease
     Route: 048
     Dates: start: 2020
  8. CLOSTRIDIUM BUTYRICUM SPORES STRAIN M-55 [Concomitant]
     Active Substance: CLOSTRIDIUM BUTYRICUM SPORES STRAIN M-55
     Indication: Product used for unknown indication

REACTIONS (9)
  - Cardio-respiratory arrest [Fatal]
  - Haematemesis [Unknown]
  - Abdominal pain [Unknown]
  - Vomiting [Unknown]
  - Intestinal ischaemia [Fatal]
  - Pneumonia aspiration [Unknown]
  - C-reactive protein increased [Unknown]
  - Intestinal dilatation [Unknown]
  - Post procedural complication [Unknown]

NARRATIVE: CASE EVENT DATE: 20230101
